FAERS Safety Report 17007020 (Version 1)
Quarter: 2019Q4

REPORT INFORMATION
  Report Type: Spontaneous
  Country: US (occurrence: US)
  Receive Date: 20191107
  Receipt Date: 20191107
  Transmission Date: 20200122
  Serious: No
  Sender: FDA-Public Use
  Company Number: US-009507513-1911USA001586

PATIENT
  Sex: Female

DRUGS (1)
  1. PREGNYL [Suspect]
     Active Substance: CHORIOGONADOTROPIN ALFA
     Indication: INFERTILITY FEMALE
     Dosage: STRENGTH 10000U/V; DOSE 10000 UNITS, FREQUENCY AS DIRECTED
     Route: 058
     Dates: start: 20191008

REACTIONS (1)
  - Maternal exposure before pregnancy [Unknown]
